FAERS Safety Report 6189040-2 (Version None)
Quarter: 2009Q2

REPORT INFORMATION
  Report Type: 
  Country: None (occurrence: None)
  Receive Date: 20090513
  Receipt Date: 20090513
  Transmission Date: 20091009
  Serious: Yes (Other)
  Sender: FDA-Public Use
  Company Number: US-PFIZER INC-2009171420

PATIENT
  Sex: Female
  Weight: 68.027 kg

DRUGS (1)
  1. LYRICA [Suspect]
     Indication: FIBROMYALGIA
     Dosage: 100 MG, 3X/DAY
     Dates: start: 20080401

REACTIONS (4)
  - DRUG INEFFECTIVE [None]
  - EMOTIONAL DISTRESS [None]
  - MENSTRUATION IRREGULAR [None]
  - PREMATURE LABOUR [None]
